FAERS Safety Report 17132424 (Version 1)
Quarter: 2019Q4

REPORT INFORMATION
  Report Type: Spontaneous
  Country: DE (occurrence: DE)
  Receive Date: 20191210
  Receipt Date: 20191210
  Transmission Date: 20200122
  Serious: Yes (Other)
  Sender: FDA-Public Use
  Company Number: DE-SA-2019SA244393

PATIENT
  Age: 67 Year
  Sex: Female
  Weight: 80 kg

DRUGS (38)
  1. PROPAFENONE HYDROCHLORIDE. [Suspect]
     Active Substance: PROPAFENONE HYDROCHLORIDE
     Indication: ARRHYTHMIA
     Dosage: UNK, IRD
     Route: 048
  2. REMIFENTANIL HYDROCHLORIDE. [Suspect]
     Active Substance: REMIFENTANIL HYDROCHLORIDE
     Indication: STUPOR
     Dosage: .45 G, ONCE/SINGLE
     Route: 042
     Dates: start: 20010904, end: 20010904
  3. RANITIDINE HYDROCHLORIDE. [Suspect]
     Active Substance: RANITIDINE HYDROCHLORIDE
     Indication: PRODUCT USED FOR UNKNOWN INDICATION
     Dosage: 100 ML, ONCE/SINGLE
     Route: 042
     Dates: start: 20010910, end: 20010910
  4. FENISTIL [Suspect]
     Active Substance: DIMETHINDENE
     Indication: PREMEDICATION
     Dosage: 8 ML, ONCE/SINGLE
     Route: 042
     Dates: start: 20010910, end: 20010910
  5. SUFENTA [Suspect]
     Active Substance: SUFENTANIL CITRATE
     Indication: STUPOR
     Dosage: UNK
     Route: 042
     Dates: start: 20010910, end: 20010910
  6. RINGER ACETAT [CALCIUM CHLORIDE;POTASSIUM CHLORIDE] [Concomitant]
     Indication: PRODUCT USED FOR UNKNOWN INDICATION
     Route: 042
     Dates: start: 20010904, end: 20010904
  7. MULTIBIONTA [ASCORBIC ACID;CALCIUM PANTOTHENATE;CYANOCOBALAMIN;NICOTIN [Suspect]
     Active Substance: MINERALS\PROBIOTICS NOS\VITAMINS
     Indication: PRODUCT USED FOR UNKNOWN INDICATION
     Dosage: 1DF/DAY
     Route: 042
     Dates: start: 20010911
  8. PROPOFOL. [Suspect]
     Active Substance: PROPOFOL
     Indication: STUPOR
     Route: 042
     Dates: start: 20010910, end: 20010910
  9. PIRACETAM [Suspect]
     Active Substance: PIRACETAM
     Dosage: 1 DF, BID
     Route: 048
     Dates: start: 20010904, end: 20010909
  10. ROPIVACAINE HYDROCHLORIDE. [Suspect]
     Active Substance: ROPIVACAINE HYDROCHLORIDE
     Route: 042
     Dates: start: 20010910, end: 20010910
  11. NAVOBAN [Suspect]
     Active Substance: TROPISETRON HYDROCHLORIDE
     Indication: PROPHYLAXIS OF NAUSEA AND VOMITING
     Dosage: 2 MG, ONCE/SINGLE
     Route: 042
     Dates: start: 20010910, end: 20010910
  12. RINGER [CALCIUM CHLORIDE;POTASSIUM CHLORIDE] [Concomitant]
     Dosage: UNK
     Route: 042
     Dates: start: 20010910, end: 20010910
  13. PIRACETAM [Suspect]
     Active Substance: PIRACETAM
     Indication: PRODUCT USED FOR UNKNOWN INDICATION
     Route: 048
     Dates: start: 20010910
  14. CARBIDOPA/LEVODOPA [Suspect]
     Active Substance: CARBIDOPA\LEVODOPA
     Dosage: 50 MG, TID
     Route: 048
     Dates: start: 20010904, end: 20010909
  15. CISATRACURIUM. [Suspect]
     Active Substance: CISATRACURIUM
     Indication: STUPOR
     Route: 042
     Dates: start: 20010910, end: 20010910
  16. MONO-EMBOLEX [Suspect]
     Active Substance: CERTOPARIN SODIUM
     Indication: THROMBOSIS PROPHYLAXIS
     Dosage: .5 ML, ONCE/SINGLE
     Route: 058
     Dates: start: 20010910, end: 20010910
  17. PROPAFENONE HYDROCHLORIDE. [Suspect]
     Active Substance: PROPAFENONE HYDROCHLORIDE
     Indication: ARRHYTHMIA
     Dosage: 150 MG, BID
     Route: 048
     Dates: start: 20010910
  18. PROPAFENONE HYDROCHLORIDE. [Suspect]
     Active Substance: PROPAFENONE HYDROCHLORIDE
     Dosage: 150 MG, BID
     Route: 048
     Dates: start: 20010904
  19. KETAMINE [Suspect]
     Active Substance: KETAMINE
     Indication: STUPOR
     Route: 042
     Dates: start: 20010910, end: 20010910
  20. NOVALGIN (METAMIZOLE SODIUM) [Suspect]
     Active Substance: METAMIZOLE SODIUM
     Indication: PAIN
     Dosage: .25 G, ONCE/SINGLE
     Route: 042
     Dates: start: 20010904, end: 20010904
  21. PIRACETAM [Suspect]
     Active Substance: PIRACETAM
     Indication: PRODUCT USED FOR UNKNOWN INDICATION
     Dosage: 12 DF, UNK IRD
     Route: 048
  22. CARBIDOPA/LEVODOPA [Suspect]
     Active Substance: CARBIDOPA\LEVODOPA
     Indication: PARKINSON^S DISEASE
     Dosage: 50 MG, TID
     Route: 048
  23. MIDAZOLAM [Suspect]
     Active Substance: MIDAZOLAM HYDROCHLORIDE
     Indication: STUPOR
     Route: 042
     Dates: start: 20010910, end: 20010910
  24. DIGITOXIN [Suspect]
     Active Substance: DIGITOXIN
     Indication: CARDIAC FAILURE
     Dosage: UNK
     Route: 048
  25. THIOPENTAL SODIUM. [Suspect]
     Active Substance: THIOPENTAL SODIUM
     Indication: STUPOR
     Dosage: 250 ML, ONCE/SINGLE
     Route: 042
     Dates: start: 20010904, end: 20010904
  26. NEOSTIGMINE SALT NOT SPECIFIED [Suspect]
     Active Substance: NEOSTIGMINE
     Indication: PRODUCT USED FOR UNKNOWN INDICATION
     Dosage: 2DF/DAY
     Route: 042
     Dates: start: 20010911
  27. DIGITOXIN [Suspect]
     Active Substance: DIGITOXIN
     Dosage: .07 MG, QD
     Route: 048
     Dates: start: 20010904
  28. CALCIUM BETA [Concomitant]
     Indication: BLOOD CALCIUM DECREASED
     Dosage: UNK, IRD
     Route: 048
  29. GELAFUNDIN [CALCIUM CHLORIDE DIHYDRATE;GELATINE POLYSUCCINATE;SODIUM C [Concomitant]
     Indication: PRODUCT USED FOR UNKNOWN INDICATION
     Route: 042
     Dates: start: 20010910, end: 20010910
  30. CEFUROXIME SODIUM. [Suspect]
     Active Substance: CEFUROXIME SODIUM
     Indication: PRODUCT USED FOR UNKNOWN INDICATION
     Dosage: 2 G, TID
     Route: 042
     Dates: start: 20010911
  31. CARBIDOPA/LEVODOPA [Suspect]
     Active Substance: CARBIDOPA\LEVODOPA
     Indication: PARKINSON^S DISEASE
     Dosage: 50 MG, TID
     Route: 048
     Dates: start: 20010910
  32. SUPRATONIN [Suspect]
     Active Substance: AMEZINIUM METILSULFATE
     Indication: PRODUCT USED FOR UNKNOWN INDICATION
     Dosage: 2.5 MG, ONCE/SINGLE
     Route: 042
     Dates: start: 20010910, end: 20010910
  33. NAROPIN [Suspect]
     Active Substance: ROPIVACAINE HYDROCHLORIDE
     Indication: STUPOR
     Route: 042
     Dates: start: 20010910, end: 20010910
  34. DEXPANTHENOL. [Suspect]
     Active Substance: DEXPANTHENOL
     Indication: PRODUCT USED FOR UNKNOWN INDICATION
     Dosage: 2DF/DAY
     Route: 042
     Dates: start: 20010911
  35. ATROPINE SULFATE. [Suspect]
     Active Substance: ATROPINE SULFATE
     Indication: SURGERY
     Dosage: .25 MG, ONCE/SINGLE
     Route: 042
     Dates: start: 20010904, end: 20010904
  36. ATROPINE SULFATE. [Suspect]
     Active Substance: ATROPINE SULFATE
     Dosage: .25 MG, ONCE/SINGLE
     Route: 042
     Dates: start: 20010910, end: 20010910
  37. FENTANYL. [Suspect]
     Active Substance: FENTANYL
     Indication: STUPOR
     Dosage: UNK ML
     Route: 042
     Dates: start: 20010910, end: 20010910
  38. JONOSTERIL [CALCIUM CHLORIDE DIHYDRATE;GLUCOSE;POTASSIUM CHLORIDE;SODI [Concomitant]
     Indication: PRODUCT USED FOR UNKNOWN INDICATION
     Dosage: 2500ML/DAY
     Route: 042
     Dates: start: 20010910

REACTIONS (8)
  - Pyrexia [Recovered/Resolved]
  - Rash macular [Recovering/Resolving]
  - Toxic epidermal necrolysis [Recovering/Resolving]
  - Erythema [Recovering/Resolving]
  - Hysterectomy [Unknown]
  - Blister [Recovering/Resolving]
  - Petechiae [Recovering/Resolving]
  - Stevens-Johnson syndrome [Recovering/Resolving]

NARRATIVE: CASE EVENT DATE: 20010910
